FAERS Safety Report 6672392-4 (Version None)
Quarter: 2010Q2

REPORT INFORMATION
  Report Type: 
  Country: None (occurrence: None)
  Receive Date: 20100408
  Receipt Date: 20100324
  Transmission Date: 20101027
  Serious: Yes (Hospitalization)
  Sender: FDA-Public Use
  Company Number: ES-ELI_LILLY_AND_COMPANY-ES201003007488

PATIENT
  Sex: Male
  Weight: 60 kg

DRUGS (14)
  1. FORTEO [Suspect]
     Indication: OSTEOPOROSIS
     Dosage: 20 UG, DAILY (1/D)
     Route: 058
     Dates: start: 20080501
  2. CALCIUM SANDOZ [Concomitant]
     Indication: OSTEOPOROSIS
     Dosage: 1 D/F, DAILY (1/D)
     Route: 048
  3. PANTECTA [Concomitant]
     Indication: GASTRITIS PROPHYLAXIS
     Dosage: 1 D/F, DAILY (1/D)
     Route: 048
  4. TRANXILIUM [Concomitant]
     Indication: ANXIETY
     Dosage: 5 MG, EACH EVENING
     Route: 048
  5. PULMENO [Concomitant]
     Indication: LUNG DISORDER
     Dosage: UNK, DAILY (1/D)
     Route: 055
  6. ACETILCISTEINA [Concomitant]
     Dosage: 200 MG, EVERY 8 HRS
     Route: 048
  7. SPIRIVA [Concomitant]
     Indication: LUNG DISORDER
     Dosage: UNK, DAILY (1/D)
     Route: 055
  8. OPONAF [Concomitant]
     Indication: LIVER DISORDER
     Dosage: 10 MG, DAILY (1/D)
     Route: 048
  9. VENTOLIN                                /SCH/ [Concomitant]
     Indication: LUNG DISORDER
     Dosage: UNK, AS NEEDED
     Route: 055
  10. SUTRIL [Concomitant]
     Indication: HYPERTENSION
     Dosage: 10 MG, 2/D
     Route: 048
  11. SINTROM [Concomitant]
     Indication: ANTICOAGULANT THERAPY
     Dosage: 1 MG, AS NEEDED
     Route: 048
  12. PLUSVENT [Concomitant]
     Indication: LUNG DISORDER
     Dosage: 500 MG, 2/D
     Route: 055
  13. CARDURA [Concomitant]
     Indication: HYPERTENSION
     Dosage: 1 D/F, DAILY (1/D)
     Route: 048
  14. OXYCODONE HCL [Concomitant]
     Indication: ANALGESIC THERAPY
     Dosage: 5 MG, 2/D
     Route: 048

REACTIONS (2)
  - CARDIAC ARREST [None]
  - LOSS OF CONSCIOUSNESS [None]
